FAERS Safety Report 8047409-5 (Version None)
Quarter: 2012Q1

REPORT INFORMATION
  Report Type: 
  Country: None (occurrence: None)
  Receive Date: 20120116
  Receipt Date: 20120110
  Transmission Date: 20120608
  Serious: Yes (Hospitalization)
  Sender: FDA-Public Use
  Company Number: AU-AMGEN-AUSSP2011041442

PATIENT
  Age: 80 Year
  Sex: Male

DRUGS (3)
  1. ARANESP [Suspect]
     Indication: PRODUCT USED FOR UNKNOWN INDICATION
     Dosage: 150 MG, QD
     Route: 058
     Dates: start: 20080803
  2. EXJADE [Suspect]
     Dosage: 600 MG, QD
     Dates: start: 20110310, end: 20110421
  3. TRANEXAMIC ACID [Suspect]
     Dosage: 500 MG, UNK
     Route: 048
     Dates: start: 20101104, end: 20110428

REACTIONS (8)
  - LIVER FUNCTION TEST ABNORMAL [None]
  - LETHARGY [None]
  - NAUSEA [None]
  - DECREASED APPETITE [None]
  - JAUNDICE [None]
  - BLOOD CREATININE INCREASED [None]
  - DIABETES MELLITUS [None]
  - RENAL FAILURE ACUTE [None]
